FAERS Safety Report 8524538-0 (Version None)
Quarter: 2012Q3

REPORT INFORMATION
  Report Type: 
  Country: None (occurrence: None)
  Receive Date: 20120720
  Receipt Date: 20120629
  Transmission Date: 20120928
  Serious: Yes (Other)
  Sender: FDA-Public Use
  Company Number: JP-JNJFOC-20110901078

PATIENT
  Age: 30 Year
  Sex: Female

DRUGS (8)
  1. TOPIRAMATE [Suspect]
     Route: 048
     Dates: start: 20090519, end: 20090614
  2. TOPIRAMATE [Suspect]
     Route: 048
     Dates: start: 20090727, end: 20091004
  3. TOPIRAMATE [Suspect]
     Route: 048
     Dates: start: 20090615, end: 20090726
  4. VALPROATE SODIUM [Suspect]
     Indication: EPILEPSY
     Route: 065
  5. PHENYTOIN [Suspect]
     Indication: EPILEPSY
     Route: 065
  6. TOPIRAMATE [Suspect]
     Indication: EPILEPSY
     Route: 048
     Dates: start: 20090421, end: 20090518
  7. TOPIRAMATE [Suspect]
     Route: 048
     Dates: start: 20091005, end: 20091206
  8. TOPIRAMATE [Suspect]
     Route: 048
     Dates: start: 20091207

REACTIONS (1)
  - DRUG-INDUCED LIVER INJURY [None]
